FAERS Safety Report 11043461 (Version 3)
Quarter: 2015Q4

REPORT INFORMATION
  Report Type: Spontaneous
  Country: US (occurrence: US)
  Receive Date: 20150417
  Receipt Date: 20151202
  Transmission Date: 20160304
  Serious: Yes (Hospitalization)
  Sender: FDA-Public Use
  Company Number: US-BIOGENIDEC-2015BI047555

PATIENT
  Age: 62 Year
  Sex: Female

DRUGS (1)
  1. TECFIDERA [Suspect]
     Active Substance: DIMETHYL FUMARATE
     Indication: MULTIPLE SCLEROSIS
     Route: 048

REACTIONS (12)
  - Skin irritation [Unknown]
  - Bladder perforation [Recovered/Resolved]
  - Blood count abnormal [Recovered/Resolved]
  - Bladder catheterisation [Not Recovered/Not Resolved]
  - Colostomy [Not Recovered/Not Resolved]
  - Gastric disorder [Recovered/Resolved]
  - Paralysis [Not Recovered/Not Resolved]
  - Skin lesion [Unknown]
  - Decubitus ulcer [Unknown]
  - Cholelithiasis [Recovered/Resolved]
  - Weight decreased [Recovered/Resolved]
  - Blister [Recovered/Resolved]

NARRATIVE: CASE EVENT DATE: 20150307
